FAERS Safety Report 24897735 (Version 1)
Quarter: 2025Q1

REPORT INFORMATION
  Report Type: Report from Study
  Country: US (occurrence: US)
  Receive Date: 20250129
  Receipt Date: 20250129
  Transmission Date: 20250409
  Serious: Yes (Hospitalization, Other)
  Sender: ABBVIE
  Company Number: US-ABBVIE-6103821

PATIENT
  Sex: Male

DRUGS (1)
  1. CREON [Suspect]
     Active Substance: PANCRELIPASE AMYLASE\PANCRELIPASE LIPASE\PANCRELIPASE PROTEASE
     Indication: Product used for unknown indication
     Route: 048
     Dates: start: 20240801

REACTIONS (6)
  - Loss of consciousness [Unknown]
  - Syncope [Not Recovered/Not Resolved]
  - Fall [Unknown]
  - Nephrolithiasis [Not Recovered/Not Resolved]
  - Thrombosis [Not Recovered/Not Resolved]
  - Hospitalisation [Unknown]
